FAERS Safety Report 6982987-6 (Version None)
Quarter: 2010Q3

REPORT INFORMATION
  Report Type: 
  Country: None (occurrence: None)
  Receive Date: 20100914
  Receipt Date: 20100520
  Transmission Date: 20110219
  Serious: Yes (Other)
  Sender: FDA-Public Use
  Company Number: US-PFIZER INC-2010064409

PATIENT
  Age: 65 Year
  Sex: Female

DRUGS (5)
  1. LYRICA [Suspect]
     Dosage: 75 MG, 3X/DAY
  2. VICODIN [Concomitant]
     Dosage: UNK
  3. FIORICET [Concomitant]
     Dosage: UNK
  4. BENTYL [Concomitant]
     Dosage: UNK
  5. OMNICEF [Concomitant]
     Dosage: UNK

REACTIONS (1)
  - DYSPNOEA [None]
